FAERS Safety Report 7980134-5 (Version None)
Quarter: 2011Q4

REPORT INFORMATION
  Report Type: 
  Country: None (occurrence: None)
  Receive Date: 20111214
  Receipt Date: 20111208
  Transmission Date: 20120403
  Serious: Yes (Hospitalization, Disabling)
  Sender: FDA-Public Use
  Company Number: US-MERCK-1106USA02201

PATIENT
  Age: 60 Year
  Sex: Female

DRUGS (3)
  1. FOSAMAX [Suspect]
     Indication: PREMATURE MENOPAUSE
     Route: 048
     Dates: start: 19940101, end: 20110612
  2. PREMPRO [Concomitant]
     Route: 065
  3. NAPROSYN [Concomitant]
     Route: 065

REACTIONS (5)
  - ARTHRALGIA [None]
  - FEMUR FRACTURE [None]
  - FRACTURE NONUNION [None]
  - BONE DISORDER [None]
  - FEAR [None]
